FAERS Safety Report 5910133-6 (Version None)
Quarter: 2008Q4

REPORT INFORMATION
  Report Type: 
  Country: None (occurrence: None)
  Receive Date: 20081007
  Receipt Date: 20081001
  Transmission Date: 20090506
  Serious: Yes (Hospitalization, Other)
  Sender: FDA-Public Use
  Company Number: US-BAYER-200831827NA

PATIENT
  Age: 82 Year
  Sex: Male
  Weight: 95 kg

DRUGS (9)
  1. NEXAVAR [Suspect]
     Indication: HEPATIC NEOPLASM MALIGNANT
     Dosage: TOTAL DAILY DOSE: 400 MG  UNIT DOSE: 200 MG
     Route: 048
     Dates: start: 20080821, end: 20080821
  2. NEXAVAR [Suspect]
     Dosage: TOTAL DAILY DOSE: 800 MG  UNIT DOSE: 200 MG
     Route: 048
     Dates: start: 20080822, end: 20080822
  3. NEXAVAR [Suspect]
     Dosage: TOTAL DAILY DOSE: 800 MG  UNIT DOSE: 200 MG
     Route: 048
     Dates: start: 20080823, end: 20080920
  4. FLOMAX [Concomitant]
  5. BLOOD PRESSURE MEDICATIONS [Concomitant]
  6. CHOLESTEROL MEDICATION (UNCODEABLE ^UNKNOWN MANUFACTUER^) [Concomitant]
  7. LAXATIVE [Concomitant]
  8. APPETITE STIMULANT [Concomitant]
  9. PAIN MEDICATION (UNCODEABLE ^UNKNOWN MANUFACTURER^) [Concomitant]

REACTIONS (10)
  - ANOREXIA [None]
  - DEHYDRATION [None]
  - DISORIENTATION [None]
  - DIZZINESS [None]
  - GAIT DISTURBANCE [None]
  - METASTASES TO SPINE [None]
  - MOTOR DYSFUNCTION [None]
  - MUSCULAR WEAKNESS [None]
  - NAUSEA [None]
  - PAIN [None]
